FAERS Safety Report 24884680 (Version 7)
Quarter: 2025Q4

REPORT INFORMATION
  Report Type: Spontaneous
  Country: US (occurrence: US)
  Receive Date: 20250124
  Receipt Date: 20251204
  Transmission Date: 20260117
  Serious: Yes (Hospitalization)
  Sender: SANOFI AVENTIS
  Company Number: US-SA-2025SA020424

PATIENT
  Age: 56 Year
  Sex: Female
  Weight: 73.016 kg

DRUGS (5)
  1. FABRAZYME [Suspect]
     Active Substance: AGALSIDASE BETA
     Indication: Fabry^s disease
     Dosage: 70 MG, QOW
     Route: 042
     Dates: start: 202503
  2. FABRAZYME [Suspect]
     Active Substance: AGALSIDASE BETA
     Dosage: 70 MG, QOW
     Route: 042
  3. SODIUM CHLORIDE [Concomitant]
     Active Substance: SODIUM CHLORIDE
     Dosage: UNK
  4. HEPARIN [Concomitant]
     Active Substance: HEPARIN SODIUM
     Dosage: UNK
  5. LIDOCAINE\PRILOCAINE [Concomitant]
     Active Substance: LIDOCAINE\PRILOCAINE

REACTIONS (14)
  - Chest pain [Unknown]
  - Dyspnoea [Unknown]
  - Decreased appetite [Unknown]
  - Weight increased [Recovering/Resolving]
  - General physical health deterioration [Unknown]
  - Gait disturbance [Unknown]
  - Insomnia [Unknown]
  - Infusion site discomfort [Unknown]
  - Poor venous access [Not Recovered/Not Resolved]
  - Pain [Unknown]
  - Headache [Unknown]
  - Nausea [Unknown]
  - Pain in extremity [Unknown]
  - Infusion site pain [Unknown]

NARRATIVE: CASE EVENT DATE: 20250101
